FAERS Safety Report 6529022-1 (Version None)
Quarter: 2009Q4

REPORT INFORMATION
  Report Type: 
  Country: None (occurrence: None)
  Receive Date: 20091229
  Receipt Date: 20091218
  Transmission Date: 20100525
  Serious: Yes (Other)
  Sender: FDA-Public Use
  Company Number: 2009US002491

PATIENT
  Age: 47 Year
  Sex: Female

DRUGS (7)
  1. AMBISOME [Suspect]
     Indication: SYSTEMIC MYCOSIS
     Dosage: 250 MG, UID/QD, IV DRIP
     Route: 041
     Dates: start: 20090527, end: 20090613
  2. FAMOTIDINE [Concomitant]
  3. MUCOSTA (REBAMIPIDE) [Concomitant]
  4. SULFAMETHOXAZOLE AND TRIMETHOPRIM [Concomitant]
  5. POLARAMINE (CHLORPHENAMINE MALEATE) [Concomitant]
  6. PEMIROC AJINOMOTO (HEPARIN SODIUM) [Concomitant]
  7. PLATELETS [Concomitant]

REACTIONS (7)
  - DEVICE RELATED INFECTION [None]
  - FUNGAL SEPSIS [None]
  - LOCAL SWELLING [None]
  - PATHOGEN RESISTANCE [None]
  - STAPHYLOCOCCAL INFECTION [None]
  - THROMBOPHLEBITIS [None]
  - VENA CAVA THROMBOSIS [None]
